FAERS Safety Report 13140041 (Version 1)
Quarter: 2017Q1

REPORT INFORMATION
  Report Type: Spontaneous
  Country: US (occurrence: US)
  Receive Date: 20170123
  Receipt Date: 20170123
  Transmission Date: 20170428
  Serious: No
  Sender: FDA-Public Use
  Company Number: US-UNITED THERAPEUTICS-UNT-2016-014422

PATIENT
  Age: 65 Year
  Sex: Male
  Weight: 89.34 kg

DRUGS (2)
  1. TYVASO [Suspect]
     Active Substance: TREPROSTINIL
     Indication: PULMONARY ARTERIAL HYPERTENSION
     Dosage: 18 TO 54 MICROGRAMS, QID
     Dates: start: 20151210, end: 201609
  2. TYVASO [Suspect]
     Active Substance: TREPROSTINIL
     Dosage: UNK

REACTIONS (3)
  - Dyspnoea [Unknown]
  - Malaise [Unknown]
  - Therapy non-responder [Unknown]

NARRATIVE: CASE EVENT DATE: 201609
